FAERS Safety Report 6543432-8 (Version None)
Quarter: 2010Q1

REPORT INFORMATION
  Report Type: 
  Country: None (occurrence: None)
  Receive Date: 20100120
  Receipt Date: 20100114
  Transmission Date: 20100710
  Serious: Yes (Hospitalization)
  Sender: FDA-Public Use
  Company Number: A0816576A

PATIENT
  Age: 87 Year
  Sex: Female

DRUGS (1)
  1. ADVAIR [Suspect]
     Indication: DRUG USE FOR UNKNOWN INDICATION
     Route: 055
     Dates: start: 20010101

REACTIONS (1)
  - BLOOD PRESSURE INCREASED [None]
